FAERS Safety Report 19951560 (Version 2)
Quarter: 2021Q4

REPORT INFORMATION
  Report Type: Spontaneous
  Country: CH (occurrence: CH)
  Receive Date: 20211013
  Receipt Date: 20211020
  Transmission Date: 20220303
  Serious: Yes (Death, Hospitalization, Other)
  Sender: FDA-Public Use
  Company Number: CH-PFIZER INC-202101334109

PATIENT
  Age: 70 Year
  Sex: Male

DRUGS (21)
  1. COTRIMOXAZOLE [Interacting]
     Active Substance: SULFAMETHOXAZOLE\TRIMETHOPRIM
     Dosage: 800MG/160MG 3 DAYS PER WEEK
  2. ABACAVIR [Suspect]
     Active Substance: ABACAVIR
     Indication: HIV infection
     Dosage: 600 MG, 1X/DAY
     Route: 065
  3. LAMIVUDINE [Interacting]
     Active Substance: LAMIVUDINE
     Indication: HIV infection
     Dosage: 150 MG, 1X/DAY (HIGH-DOSE)
     Route: 065
  4. LAMIVUDINE [Interacting]
     Active Substance: LAMIVUDINE
     Dosage: 100 MG, 1X/DAY
     Route: 065
  5. PIPERACILLIN AND TAZOBACTAM [Concomitant]
     Active Substance: PIPERACILLIN SODIUM\TAZOBACTAM SODIUM
     Indication: Evidence based treatment
     Dosage: UNK
     Route: 065
  6. PIPERACILLIN AND TAZOBACTAM [Concomitant]
     Active Substance: PIPERACILLIN SODIUM\TAZOBACTAM SODIUM
     Indication: Antibiotic therapy
  7. EPINEPHRINE [Concomitant]
     Active Substance: EPINEPHRINE
     Indication: Haemodynamic instability
     Dosage: UNK
     Route: 065
  8. NOREPINEPHRINE [Concomitant]
     Active Substance: NOREPINEPHRINE
     Indication: Haemodynamic instability
     Dosage: 2-4 MICROGRAM, QMINUTE
     Route: 065
  9. NOREPINEPHRINE [Concomitant]
     Active Substance: NOREPINEPHRINE
     Dosage: 12 UG (12 MICROGRAM, QMINUTE)
     Route: 065
  10. NOREPINEPHRINE [Concomitant]
     Active Substance: NOREPINEPHRINE
     Dosage: 50 UG (50 MICROGRAM, QMINUTE)
     Route: 065
  11. ARGIPRESSIN [Concomitant]
     Active Substance: ARGIPRESSIN
     Indication: Haemodynamic instability
     Dosage: 0.03 IU (0.03 UNITS, QMINUTE)
     Route: 065
  12. DOBUTAMINE [Concomitant]
     Active Substance: DOBUTAMINE HYDROCHLORIDE
     Indication: Haemodynamic instability
     Dosage: UNK
     Route: 065
  13. ILOPROST [Concomitant]
     Active Substance: ILOPROST
     Indication: Haemodynamic instability
     Dosage: UNK
     Route: 065
  14. THIAMINE [Concomitant]
     Active Substance: THIAMINE
     Indication: Haemodynamic instability
     Dosage: UNK (BOLUS)
     Route: 065
  15. TACROLIMUS [Concomitant]
     Active Substance: TACROLIMUS
     Indication: Immunosuppressant drug therapy
     Dosage: 7 MG, 1X/DAY (7 MILLIGRAM, QD)
     Route: 065
  16. PREDNISONE [Concomitant]
     Active Substance: PREDNISONE
     Indication: Immunosuppressant drug therapy
     Dosage: 10 MG, 1X/DAY
     Route: 065
  17. DOLUTEGRAVIR [Concomitant]
     Active Substance: DOLUTEGRAVIR
     Indication: HIV infection
     Dosage: 50 MG, 1X/DAY
     Route: 065
  18. IMIPENEM [Concomitant]
     Active Substance: IMIPENEM
     Indication: Evidence based treatment
     Dosage: UNK
     Route: 065
  19. IMIPENEM [Concomitant]
     Active Substance: IMIPENEM
     Indication: Antibiotic therapy
  20. CLINDAMYCIN [Concomitant]
     Active Substance: CLINDAMYCIN
     Indication: Evidence based treatment
     Dosage: UNK
     Route: 065
  21. CLINDAMYCIN [Concomitant]
     Active Substance: CLINDAMYCIN
     Indication: Antibiotic therapy

REACTIONS (4)
  - Lactic acidosis [Fatal]
  - Hyperlactacidaemia [Fatal]
  - Drug interaction [Fatal]
  - Toxicity to various agents [Fatal]
